FAERS Safety Report 4607934-3 (Version None)
Quarter: 2005Q1

REPORT INFORMATION
  Report Type: 
  Country: None (occurrence: None)
  Receive Date: 20050314
  Receipt Date: 20050304
  Transmission Date: 20050727
  Serious: Yes (Hospitalization)
  Sender: FDA-Public Use
  Company Number: FR-ABBOTT-05P-056-0293119-00

PATIENT
  Age: 28 Year
  Sex: Female

DRUGS (2)
  1. KALETRA [Suspect]
     Indication: HIV INFECTION
     Route: 048
     Dates: start: 20050107, end: 20050206
  2. LAMIVUDINE AND ZIDOVUDINE [Suspect]
     Indication: HIV INFECTION
     Route: 048
     Dates: start: 20050107, end: 20050206

REACTIONS (5)
  - CONDITION AGGRAVATED [None]
  - HEPATITIS [None]
  - HYPERTRIGLYCERIDAEMIA [None]
  - PANCYTOPENIA [None]
  - PYREXIA [None]
